FAERS Safety Report 5682735-6 (Version None)
Quarter: 2008Q1

REPORT INFORMATION
  Report Type: 
  Country: None (occurrence: None)
  Receive Date: 20080327
  Receipt Date: 20080312
  Transmission Date: 20080703
  Serious: Yes (Other)
  Sender: FDA-Public Use
  Company Number: JP-ASTRAZENECA-2008AP00672

PATIENT
  Age: 19851 Day
  Sex: Female

DRUGS (7)
  1. SEROQUEL [Suspect]
     Indication: SCHIZOPHRENIA
     Dosage: DIVIDED INTO 4 DOSES
     Route: 048
     Dates: start: 20071001
  2. DEPAKENE [Suspect]
     Indication: SCHIZOPHRENIA
     Route: 048
     Dates: start: 20071106, end: 20080131
  3. DIAZEPAM [Concomitant]
     Indication: SCHIZOPHRENIA
     Route: 048
  4. SILECE [Concomitant]
     Indication: INSOMNIA
     Route: 048
  5. VEGETAMIN [Concomitant]
     Indication: INSOMNIA
     Route: 048
  6. HALCION [Concomitant]
     Indication: INSOMNIA
     Route: 048
  7. SENNOSIDE [Concomitant]
     Route: 048

REACTIONS (1)
  - THROMBOCYTOPENIA [None]
